FAERS Safety Report 26072525 (Version 2)
Quarter: 2025Q4

REPORT INFORMATION
  Report Type: Report from Study
  Country: CA (occurrence: CA)
  Receive Date: 20251120
  Receipt Date: 20251229
  Transmission Date: 20260118
  Serious: Yes (Hospitalization, Other)
  Sender: TAKEDA
  Company Number: CA-TAKEDA-2025TUS104369

PATIENT
  Age: 80 Year
  Sex: Male

DRUGS (7)
  1. VEDOLIZUMAB [Suspect]
     Active Substance: VEDOLIZUMAB
     Indication: Colitis ulcerative
     Dosage: 300 MILLIGRAM
  2. PANTOPRAZOLE [Concomitant]
     Active Substance: PANTOPRAZOLE
     Dosage: UNK
  3. MYRBETRIQ [Concomitant]
     Active Substance: MIRABEGRON
     Dosage: UNK
  4. RIVAROXABAN [Concomitant]
     Active Substance: RIVAROXABAN
     Dosage: UNK
  5. ROSUVASTATIN [Concomitant]
     Active Substance: ROSUVASTATIN
     Dosage: UNK
  6. EZETIMIBE [Concomitant]
     Active Substance: EZETIMIBE
     Dosage: UNK
  7. Teva 5 asa [Concomitant]
     Dosage: 2.4 GRAM, QD
     Dates: start: 202501

REACTIONS (5)
  - Colitis ulcerative [Unknown]
  - Cerebrovascular accident [Unknown]
  - Road traffic accident [Unknown]
  - Product dose omission issue [Unknown]
  - Memory impairment [Unknown]

NARRATIVE: CASE EVENT DATE: 20250101
